FAERS Safety Report 7740977-X (Version None)
Quarter: 2011Q3

REPORT INFORMATION
  Report Type: 
  Country: None (occurrence: None)
  Receive Date: 20110909
  Receipt Date: 20110830
  Transmission Date: 20111222
  Serious: Yes (Hospitalization)
  Sender: FDA-Public Use
  Company Number: US-BAYER-2011-027934

PATIENT
  Age: 29 Year
  Sex: Female
  Weight: 77.098 kg

DRUGS (6)
  1. AUGMENTIN '125' [Concomitant]
     Indication: LYMPHADENITIS
     Dosage: UNK UNK, BID
     Dates: start: 20090406
  2. CLARITIN [Concomitant]
  3. YAZ [Suspect]
     Indication: CONTRACEPTION
     Dosage: UNK
     Dates: start: 20070601, end: 20090401
  4. ASCORBIC ACID [Concomitant]
     Dosage: UNK UNK, PRN
  5. ANTIBIOTICS [Concomitant]
     Dosage: UNK UNK, PRN
  6. NSAID'S [Concomitant]
     Dosage: UNK UNK, PRN

REACTIONS (8)
  - EMOTIONAL DISTRESS [None]
  - DEEP VEIN THROMBOSIS [None]
  - INTRACRANIAL VENOUS SINUS THROMBOSIS [None]
  - INJURY [None]
  - GENERAL PHYSICAL HEALTH DETERIORATION [None]
  - CEREBRAL VENOUS THROMBOSIS [None]
  - PAIN [None]
  - ANXIETY [None]
